FAERS Safety Report 9472283 (Version 1)
Quarter: 2013Q3

REPORT INFORMATION
  Report Type: Spontaneous
  Country: NL (occurrence: NL)
  Receive Date: 20130823
  Receipt Date: 20130823
  Transmission Date: 20140515
  Serious: No
  Sender: FDA-Public Use
  Company Number: NL-JNJFOC-20130805484

PATIENT
  Age: 43 Year
  Sex: Male
  Weight: 649 kg

DRUGS (1)
  1. ZYTIGA [Suspect]
     Indication: PRODUCT USED FOR UNKNOWN INDICATION
     Dosage: 250 MG X 4
     Route: 048
     Dates: start: 20130701

REACTIONS (1)
  - Visual impairment [Unknown]
